FAERS Safety Report 17722486 (Version 10)
Quarter: 2022Q3

REPORT INFORMATION
  Report Type: Spontaneous
  Country: US (occurrence: US)
  Receive Date: 20200429
  Receipt Date: 20220812
  Transmission Date: 20221027
  Serious: No
  Sender: FDA-Public Use
  Company Number: US-PFIZER INC-2020167856

PATIENT
  Age: 66 Year
  Sex: Female

DRUGS (1)
  1. XELJANZ XR [Suspect]
     Active Substance: TOFACITINIB CITRATE
     Dosage: 11 MG
     Dates: start: 20210101

REACTIONS (9)
  - Product dose omission issue [Unknown]
  - Cardiac disorder [Unknown]
  - Thyroid disorder [Unknown]
  - Emotional distress [Unknown]
  - Osteopenia [Unknown]
  - Feeling abnormal [Unknown]
  - Illness [Unknown]
  - Confusional state [Unknown]
  - Dysphagia [Unknown]
